FAERS Safety Report 11243971 (Version 1)
Quarter: 2015Q3

REPORT INFORMATION
  Report Type: Spontaneous
  Country: US (occurrence: US)
  Receive Date: 20150707
  Receipt Date: 20150707
  Transmission Date: 20151125
  Serious: No
  Sender: FDA-Public Use
  Company Number: US-DSJP-DSU-2014-130148

PATIENT
  Sex: Female

DRUGS (1)
  1. WELCHOL [Suspect]
     Active Substance: COLESEVELAM HYDROCHLORIDE
     Indication: PRODUCT USED FOR UNKNOWN INDICATION
     Dosage: 1875 MG AS 625 MG IN THE MORNING AND 1250 MG AT NIGHT
     Route: 048

REACTIONS (2)
  - Drug administration error [Not Recovered/Not Resolved]
  - No adverse event [Not Recovered/Not Resolved]
